FAERS Safety Report 12081917 (Version 3)
Quarter: 2016Q1

REPORT INFORMATION
  Report Type: Spontaneous
  Country: JP (occurrence: JP)
  Receive Date: 20160216
  Receipt Date: 20160311
  Transmission Date: 20160526
  Serious: Yes (Death)
  Sender: FDA-Public Use
  Company Number: JP-009507513-1602JPN006713

PATIENT
  Age: 75 Year
  Sex: Female

DRUGS (5)
  1. SOVALDI [Suspect]
     Active Substance: SOFOSBUVIR
     Indication: CHRONIC HEPATITIS C
     Dosage: TOTAL DAILY DOSE: 400 MG; DIVIDED DOSE FREQUENCY UNKNOWN
     Route: 048
     Dates: start: 20151127
  2. NEXIUM [Concomitant]
     Active Substance: ESOMEPRAZOLE MAGNESIUM
     Indication: GASTROOESOPHAGEAL REFLUX DISEASE
     Dosage: TOTAL DAILY DOSE: 20 MG; DIVIDED DOSE FREQUENCY UNKNOWN
     Route: 048
     Dates: start: 20151025
  3. GASMOTIN [Concomitant]
     Active Substance: MOSAPRIDE CITRATE
     Indication: CHRONIC GASTRITIS
     Dosage: TOTAL DAILY DOSE: 5 MG; DIVIDED DOSE FREQUENCY UNKNOWN
     Route: 048
     Dates: start: 20151005
  4. REBETOL [Suspect]
     Active Substance: RIBAVIRIN
     Indication: CHRONIC HEPATITIS C
     Dosage: TOTAL DAILY DOSE: 600 MG; DIVIDED DOSE FREQUENCY UNKNOWN
     Route: 048
     Dates: start: 20151127
  5. NORVASC [Concomitant]
     Active Substance: AMLODIPINE BESYLATE
     Indication: HYPERTENSION
     Dosage: TOTAL DAILY DOSE: 10 MG; DIVIDED DOSE FREQUENCY UNKNOWN
     Route: 048
     Dates: start: 20150916

REACTIONS (2)
  - Death [Fatal]
  - Nasopharyngitis [Unknown]

NARRATIVE: CASE EVENT DATE: 20160106
